FAERS Safety Report 8236978-8 (Version None)
Quarter: 2012Q1

REPORT INFORMATION
  Report Type: 
  Country: None (occurrence: None)
  Receive Date: 20120327
  Receipt Date: 20120319
  Transmission Date: 20120608
  Serious: Yes (Hospitalization)
  Sender: FDA-Public Use
  Company Number: PHHY2012FR025444

PATIENT
  Age: 80 Year
  Sex: Male

DRUGS (2)
  1. RASILEZ [Suspect]
  2. ANGIOTENSIN II ANTAGONISTS [Concomitant]

REACTIONS (1)
  - RENAL FAILURE [None]
